FAERS Safety Report 8081981-4 (Version None)
Quarter: 2012Q1

REPORT INFORMATION
  Report Type: 
  Country: None (occurrence: None)
  Receive Date: 20120130
  Receipt Date: 20111019
  Transmission Date: 20120608
  Serious: No
  Sender: FDA-Public Use
  Company Number: US-ABBOTT-11P-163-0867107-00

PATIENT
  Sex: Male

DRUGS (1)
  1. LUPRON DEPOT [Suspect]
     Indication: PROSTATE CANCER

REACTIONS (7)
  - BRUXISM [None]
  - HEADACHE [None]
  - HYPOAESTHESIA [None]
  - SINUS CONGESTION [None]
  - BONE LOSS [None]
  - TOOTHACHE [None]
  - PAIN [None]
